FAERS Safety Report 10071165 (Version 2)
Quarter: 2014Q2

REPORT INFORMATION
  Report Type: Spontaneous
  Country: US (occurrence: US)
  Receive Date: 20140410
  Receipt Date: 20140410
  Transmission Date: 20141212
  Serious: Yes (Other)
  Sender: FDA-Public Use
  Company Number: US-BAYER-2014-047353

PATIENT
  Age: 46 Year
  Sex: Female
  Weight: 63.49 kg

DRUGS (3)
  1. PHILLIPS^ LIQUID GELS STOOL SOFTENER [Suspect]
     Dosage: 1 DF, BID
     Route: 048
     Dates: start: 201403, end: 201403
  2. PHILLIPS^ LIQUID GELS STOOL SOFTENER [Suspect]
     Dosage: 4 DF, UNK
     Dates: start: 20140320, end: 20140320
  3. FLINTSTONES MULTIVITAMIN [Concomitant]
     Dosage: UNK

REACTIONS (6)
  - Anxiety [Recovered/Resolved]
  - Drug ineffective [None]
  - Nausea [Recovered/Resolved]
  - Vomiting [Recovered/Resolved]
  - Urticaria [Recovered/Resolved]
  - Pruritus [Recovered/Resolved]
